FAERS Safety Report 6604179 (Version 4)
Quarter: 2018Q4

REPORT INFORMATION
  Report Type: Spontaneous
  Country: JP (occurrence: JP)
  Receive Date: 20080402
  Receipt Date: 20181116
  Transmission Date: 20190205
  Serious: Yes (Hospitalization, Other)
  Sender: FDA-Public Use
  Company Number: PHHY2008JP03609

PATIENT
  Age: 49 Year
  Sex: Female

DRUGS (1)
  1. GLIVEC [Suspect]
     Active Substance: IMATINIB MESYLATE
     Indication: CHRONIC MYELOID LEUKAEMIA
     Dosage: UNK
     Route: 048
     Dates: start: 200408

REACTIONS (8)
  - Castleman^s disease [Recovering/Resolving]
  - Ascites [Recovering/Resolving]
  - Hypoalbuminaemia [Recovered/Resolved]
  - Hypergammaglobulinaemia [Recovered/Resolved]
  - Oedema peripheral [Recovering/Resolving]
  - Lymphadenitis [Recovered/Resolved]
  - Interleukin level increased [Recovered/Resolved]
  - Lymphadenopathy [Recovering/Resolving]

NARRATIVE: CASE EVENT DATE: 200701
